FAERS Safety Report 20747286 (Version 4)
Quarter: 2022Q2

REPORT INFORMATION
  Report Type: Spontaneous
  Country: US (occurrence: US)
  Receive Date: 20220425
  Receipt Date: 20220507
  Transmission Date: 20220721
  Serious: No
  Sender: FDA-Public Use
  Company Number: US-SA-SAC20220419000787

PATIENT
  Age: 72 Year
  Sex: Female

DRUGS (1)
  1. DUPIXENT [Suspect]
     Active Substance: DUPILUMAB
     Indication: Ill-defined disorder
     Dosage: 600 MG, 1X
     Route: 058

REACTIONS (4)
  - Injection site pain [Not Recovered/Not Resolved]
  - Wrong technique in device usage process [Unknown]
  - Incorrect dose administered [Unknown]
  - Product use in unapproved indication [Unknown]
